FAERS Safety Report 5537141-1 (Version None)
Quarter: 2007Q4

REPORT INFORMATION
  Report Type: 
  Country: None (occurrence: None)
  Receive Date: 20071205
  Receipt Date: 20071205
  Transmission Date: 20080405
  Serious: Yes (Death)
  Sender: FDA-Public Use
  Company Number: None

PATIENT
  Sex: Male
  Weight: 127.0072 kg

DRUGS (5)
  1. AVANDIA [Suspect]
     Indication: DIABETES MELLITUS
     Dosage: 1 TABLET (4MG) TWICE DAILY ORAL
     Route: 048
     Dates: start: 20071008, end: 20071105
  2. METFORMIN HCL [Suspect]
     Indication: DIABETES MELLITUS
     Dosage: 1 TABLET (500MG) TWICE DAILY ORAL
     Route: 048
     Dates: start: 20071008, end: 20071105
  3. LISINOPRIL [Concomitant]
  4. GLYBURIDE [Concomitant]
  5. CLOZAPINE [Concomitant]

REACTIONS (1)
  - HYPERTENSIVE HEART DISEASE [None]
